FAERS Safety Report 6576972-6 (Version None)
Quarter: 2010Q1

REPORT INFORMATION
  Report Type: 
  Country: None (occurrence: None)
  Receive Date: 20100210
  Receipt Date: 20100129
  Transmission Date: 20100710
  Serious: Yes (Other)
  Sender: FDA-Public Use
  Company Number: ES-PFIZER INC-2008090316

PATIENT
  Age: 75 Year
  Sex: Male
  Weight: 59.864 kg

DRUGS (6)
  1. ZARATOR [Suspect]
     Indication: BLOOD CHOLESTEROL
     Dosage: UNK
  2. ZARATOR [Suspect]
     Indication: CARDIAC DISORDER
     Dosage: 10 MG, UNK
  3. ZARATOR [Suspect]
     Dosage: 20 MG, 1X/DAY
     Route: 048
     Dates: start: 20040101
  4. TROMALYT [Concomitant]
     Dosage: 150 MG, UNK
     Route: 048
     Dates: start: 20010101
  5. ATENOLOL [Concomitant]
     Dosage: 25 MG, UNK
     Route: 048
     Dates: start: 20010101, end: 20081101
  6. MINITRAN [Concomitant]
     Dosage: 5 MG, UNK
     Dates: start: 20081001

REACTIONS (2)
  - ANGINA PECTORIS [None]
  - MUSCULAR WEAKNESS [None]
